FAERS Safety Report 9790669 (Version 1)
Quarter: 2013Q4

REPORT INFORMATION
  Report Type: Spontaneous
  Country: CN (occurrence: CN)
  Receive Date: 20131231
  Receipt Date: 20131231
  Transmission Date: 20140711
  Serious: Yes (Other)
  Sender: FDA-Public Use
  Company Number: CN-GLAXOSMITHKLINE-B0936004A

PATIENT
  Age: 46 Year
  Sex: Male

DRUGS (4)
  1. SEROXAT [Suspect]
     Indication: ANXIETY
     Dosage: 30MG PER DAY
     Route: 048
     Dates: start: 201309, end: 201310
  2. SEROXAT [Suspect]
     Indication: ANXIETY
     Route: 048
  3. CLONAZEPAM [Suspect]
     Indication: ANXIETY
     Dosage: 1TAB PER DAY
     Route: 048
     Dates: start: 201309
  4. QUETIAPINE [Suspect]
     Indication: ANXIETY
     Dosage: 1TAB PER DAY
     Route: 048
     Dates: start: 201309

REACTIONS (3)
  - Convulsions local [Unknown]
  - Sleep disorder [Unknown]
  - Feeling jittery [Unknown]
